FAERS Safety Report 17879924 (Version 10)
Quarter: 2024Q2

REPORT INFORMATION
  Report Type: Spontaneous
  Country: US (occurrence: US)
  Receive Date: 20200610
  Receipt Date: 20240402
  Transmission Date: 20240716
  Serious: Yes (Other)
  Sender: FDA-Public Use
  Company Number: US-PFIZER INC-2020225343

PATIENT
  Age: 80 Year
  Sex: Female
  Weight: 81.633 kg

DRUGS (1)
  1. XELJANZ [Suspect]
     Active Substance: TOFACITINIB CITRATE
     Indication: Rheumatoid arthritis
     Dosage: 5 MG, 2X/DAY
     Route: 048

REACTIONS (4)
  - Knee operation [Unknown]
  - Inflammation [Unknown]
  - Pain [Unknown]
  - Hypertension [Unknown]
